FAERS Safety Report 10682677 (Version 2)
Quarter: 2015Q1

REPORT INFORMATION
  Report Type: Spontaneous
  Country: BR (occurrence: BR)
  Receive Date: 20141230
  Receipt Date: 20150126
  Transmission Date: 20150720
  Serious: Yes (Other)
  Sender: FDA-Public Use
  Company Number: BR-PFIZER INC-2014355891

PATIENT
  Age: 85 Year
  Sex: Female
  Weight: 60 kg

DRUGS (6)
  1. XALATAN [Suspect]
     Active Substance: LATANOPROST
     Indication: GLAUCOMA
  2. XARELTO [Concomitant]
     Active Substance: RIVAROXABAN
     Indication: ANTICOAGULANT THERAPY
     Dosage: 1 TABLET, DAILY
     Dates: start: 2011
  3. ATENOLOL. [Concomitant]
     Active Substance: ATENOLOL
     Indication: HYPERTENSION
     Dosage: 2 TABLETS, DAILY
     Dates: start: 2011
  4. ATROPINE [Concomitant]
     Active Substance: ATROPINE
     Indication: HAEMORRHAGE PROPHYLAXIS
     Dosage: 1 DROP DAILY IN THE LEFT EYE THAT SHE DOES NOT SEE
     Dates: start: 2013
  5. AZORGA [Concomitant]
     Active Substance: BRINZOLAMIDE\TIMOLOL MALEATE
     Indication: INTRAOCULAR PRESSURE INCREASED
     Dosage: 2 DROPS, DAILY IN THE RIGHT EYE
     Dates: start: 2009
  6. XALATAN [Suspect]
     Active Substance: LATANOPROST
     Indication: INTRAOCULAR PRESSURE INCREASED
     Dosage: 1.5 ?G, 1 DROP IN THE RIGHT EYE, AT NIGHT
     Route: 047
     Dates: start: 2013

REACTIONS (3)
  - Hyperthyroidism [Unknown]
  - Cardiac disorder [Unknown]
  - Blindness [Unknown]

NARRATIVE: CASE EVENT DATE: 2013
